FAERS Safety Report 8767278 (Version 2)
Quarter: 2012Q4

REPORT INFORMATION
  Report Type: 
  Country: JP (occurrence: JP)
  Receive Date: 20120904
  Receipt Date: 20121106
  Transmission Date: 20130627
  Serious: Yes (Hospitalization)
  Sender: FDA-Public Use
  Company Number: JP-GLAXOSMITHKLINE-B0826820A

PATIENT
  Age: 69 Year
  Sex: Male

DRUGS (6)
  1. LAMICTAL [Suspect]
     Indication: EPILEPSY
     Dosage: 100MG Per day
     Route: 048
  2. FUROSEMIDE [Concomitant]
     Dosage: 20MG Per day
     Route: 048
  3. ALDACTONE A [Concomitant]
     Dosage: 25MG Per day
     Route: 048
  4. FERROMIA [Concomitant]
     Dosage: 50MG Twice per day
     Route: 048
  5. CEREB [Concomitant]
     Dosage: 200MG Three times per day
     Route: 048
  6. FRANDOL [Concomitant]
     Dosage: 40MG Per day
     Route: 062

REACTIONS (2)
  - Altered state of consciousness [Recovering/Resolving]
  - Urinary tract infection [Unknown]
